FAERS Safety Report 9356119 (Version 2)
Quarter: 2013Q4

REPORT INFORMATION
  Report Type: Spontaneous
  Country: GB (occurrence: GB)
  Receive Date: 20130619
  Receipt Date: 20131204
  Transmission Date: 20140711
  Serious: Yes (Disabling, Other)
  Sender: FDA-Public Use
  Company Number: GB-TEVA-412948ISR

PATIENT
  Age: 36 Year
  Sex: Female
  Weight: 60 kg

DRUGS (4)
  1. TAMOXIFEN [Suspect]
     Indication: BREAST CANCER
     Route: 048
     Dates: start: 201302
  2. ESCITALOPRAM [Concomitant]
     Dates: start: 201304
  3. VITAMIN D [Concomitant]
     Dosage: 1000 MILLIGRAM DAILY;
     Dates: start: 201303
  4. EVENING PRIMROSE OIL [Concomitant]

REACTIONS (7)
  - Pain in extremity [Not Recovered/Not Resolved]
  - Gait disturbance [Unknown]
  - Activities of daily living impaired [Unknown]
  - Myalgia [Unknown]
  - Bone pain [Unknown]
  - Arthralgia [Unknown]
  - Fibromyalgia [Unknown]
